FAERS Safety Report 25505740 (Version 1)
Quarter: 2025Q3

REPORT INFORMATION
  Report Type: Spontaneous
  Country: US (occurrence: US)
  Receive Date: 20250702
  Receipt Date: 20250702
  Transmission Date: 20251020
  Serious: No
  Sender: VERONA PHARMA
  Company Number: US-VERONA PHARMA-VER-006426

PATIENT
  Age: 65 Year
  Sex: Male

DRUGS (3)
  1. OHTUVAYRE [Suspect]
     Active Substance: ENSIFENTRINE
     Indication: Emphysema
     Dosage: 3 MILLIGRAM, BID
     Dates: start: 20250606
  2. BREZTRI [Concomitant]
     Active Substance: BUDESONIDE\FORMOTEROL\GLYCOPYRROLATE
     Indication: Product used for unknown indication
  3. LEVOTHYROXINE [Concomitant]
     Active Substance: LEVOTHYROXINE
     Indication: Product used for unknown indication

REACTIONS (6)
  - Influenza like illness [Unknown]
  - Asthenia [Unknown]
  - Faeces soft [Unknown]
  - Dizziness [Unknown]
  - Weight decreased [Unknown]
  - Diarrhoea [Unknown]

NARRATIVE: CASE EVENT DATE: 20250608
